FAERS Safety Report 9092289 (Version 2)
Quarter: 2013Q2

REPORT INFORMATION
  Report Type: Report from Study
  Country: US (occurrence: US)
  Receive Date: 20130201
  Receipt Date: 20130607
  Transmission Date: 20140414
  Serious: Yes (Death, Hospitalization)
  Sender: FDA-Public Use
  Company Number: US-SANOFI-AVENTIS-2013SA008319

PATIENT
  Age: 78 Year
  Sex: Female
  Weight: 61.4 kg

DRUGS (8)
  1. DOCETAXEL [Suspect]
     Indication: BLADDER CANCER
     Route: 041
     Dates: start: 20121226
  2. INVESTIGATIONAL DRUG [Suspect]
     Indication: BLADDER CANCER
     Route: 042
     Dates: start: 20121226
  3. ATENOLOL [Concomitant]
  4. LOMOTIL [Concomitant]
  5. OMEPRAZOLE [Concomitant]
  6. ZOFRAN [Concomitant]
  7. FRAGMIN [Concomitant]
  8. OXYCODONE [Concomitant]

REACTIONS (1)
  - Septic shock [Fatal]
